FAERS Safety Report 24424856 (Version 1)
Quarter: 2024Q4

REPORT INFORMATION
  Report Type: Spontaneous
  Country: US (occurrence: US)
  Receive Date: 20241010
  Receipt Date: 20241010
  Transmission Date: 20250115
  Serious: Yes (Other)
  Sender: DR REDDYS
  Company Number: US-DRL-USA-LIT/USA/24/0014805

PATIENT
  Age: 49 Year
  Sex: Male

DRUGS (10)
  1. TACROLIMUS [Suspect]
     Active Substance: TACROLIMUS
     Indication: Traumatic lung injury
  2. TACROLIMUS [Suspect]
     Active Substance: TACROLIMUS
     Indication: Immunomodulatory therapy
  3. CYCLOPHOSPHAMIDE [Suspect]
     Active Substance: CYCLOPHOSPHAMIDE
     Indication: Traumatic lung injury
  4. CYCLOPHOSPHAMIDE [Suspect]
     Active Substance: CYCLOPHOSPHAMIDE
     Indication: Immunomodulatory therapy
  5. DASATINIB [Suspect]
     Active Substance: DASATINIB
     Indication: Traumatic lung injury
  6. DASATINIB [Suspect]
     Active Substance: DASATINIB
     Indication: Immunomodulatory therapy
  7. TOCILIZUMAB [Suspect]
     Active Substance: TOCILIZUMAB
     Indication: Traumatic lung injury
  8. TOCILIZUMAB [Suspect]
     Active Substance: TOCILIZUMAB
     Indication: Immunomodulatory therapy
  9. RUXOLITINIB [Suspect]
     Active Substance: RUXOLITINIB
     Indication: Traumatic lung injury
  10. RUXOLITINIB [Suspect]
     Active Substance: RUXOLITINIB
     Indication: Immunomodulatory therapy

REACTIONS (2)
  - Condition aggravated [Unknown]
  - Drug ineffective for unapproved indication [Unknown]
